FAERS Safety Report 4532240-5 (Version None)
Quarter: 2004Q4

REPORT INFORMATION
  Report Type: 
  Country: None (occurrence: None)
  Receive Date: 20041217
  Receipt Date: 20041209
  Transmission Date: 20050328
  Serious: Yes (Hospitalization)
  Sender: FDA-Public Use
  Company Number: K200401877

PATIENT
  Age: 78 Year
  Sex: Female
  Weight: 42.6 kg

DRUGS (7)
  1. FLORINEF [Suspect]
     Indication: ORTHOSTATIC HYPOTENSION
     Dosage: SEE IMAGE
     Route: 048
     Dates: start: 20040101, end: 20040101
  2. FLORINEF [Suspect]
     Indication: ORTHOSTATIC HYPOTENSION
     Dosage: SEE IMAGE
     Route: 048
     Dates: start: 20040601, end: 20040101
  3. FLORINEF [Suspect]
     Indication: ORTHOSTATIC HYPOTENSION
     Dosage: SEE IMAGE
     Route: 048
     Dates: start: 20040101
  4. SYNTHROID [Concomitant]
  5. CELEBREX [Concomitant]
  6. PRAVACHOL [Concomitant]
  7. MULTIVITAMIN ^LAPPE^ (VITAMINS NOS) [Concomitant]

REACTIONS (4)
  - BLOOD POTASSIUM DECREASED [None]
  - BLOOD SODIUM DECREASED [None]
  - HAIR TEXTURE ABNORMAL [None]
  - LOSS OF CONSCIOUSNESS [None]
